FAERS Safety Report 17039066 (Version 1)
Quarter: 2019Q4

REPORT INFORMATION
  Report Type: Spontaneous
  Country: US (occurrence: US)
  Receive Date: 20191115
  Receipt Date: 20191115
  Transmission Date: 20200122
  Serious: No
  Sender: FDA-Public Use
  Company Number: US-SA-2019SA310882

PATIENT
  Age: 55 Year
  Sex: Male

DRUGS (9)
  1. METOPROLOL SUCCINATE. [Concomitant]
     Active Substance: METOPROLOL SUCCINATE
  2. ALLEGRA [Concomitant]
     Active Substance: FEXOFENADINE HYDROCHLORIDE
  3. COENZYME Q10 [Concomitant]
     Active Substance: UBIDECARENONE
  4. PRALUENT [Suspect]
     Active Substance: ALIROCUMAB
     Indication: HYPERLIPIDAEMIA
     Dosage: 75 MG, QOW
     Route: 058
     Dates: start: 20190925
  5. VITAMIN D NOS [Concomitant]
     Active Substance: VITAMIN D NOS
  6. MALTODEXTRIN [Concomitant]
     Active Substance: MALTODEXTRIN
  7. ASPIR LOW [Concomitant]
     Active Substance: ASPIRIN
  8. HYDROCHLOROTHIAZID [Concomitant]
     Active Substance: HYDROCHLOROTHIAZIDE
  9. SINGULAIR [Concomitant]
     Active Substance: MONTELUKAST SODIUM

REACTIONS (1)
  - Pain [Unknown]
